FAERS Safety Report 10401416 (Version 1)
Quarter: 2014Q3

REPORT INFORMATION
  Report Type: Spontaneous
  Country: US (occurrence: None)
  Receive Date: 20140819
  Receipt Date: 20140819
  Transmission Date: 20150326
  Serious: Yes (Other)
  Sender: FDA-Public Use
  Company Number: None

PATIENT
  Age: 21 Year
  Sex: Male
  Weight: 66.68 kg

DRUGS (2)
  1. TUBERCULIN PURIFIED PROTEIN DERIVATIVE [Suspect]
     Active Substance: TUBERCULIN PURIFIED PROTEIN DERIVATIVE
     Indication: TUBERCULIN TEST
     Route: 058
     Dates: start: 20140807
  2. TUBERCULIN PPD DILUTED APISOL [Concomitant]

REACTIONS (1)
  - Skin test positive [None]

NARRATIVE: CASE EVENT DATE: 20140807
